FAERS Safety Report 4289550-9 (Version None)
Quarter: 2004Q1

REPORT INFORMATION
  Report Type: 
  Country: None (occurrence: None)
  Receive Date: 20040209
  Receipt Date: 20040209
  Transmission Date: 20041129
  Serious: Yes (Life-Threatening)
  Sender: FDA-Public Use
  Company Number: None

PATIENT
  Sex: Female

DRUGS (5)
  1. PROTONIX [Suspect]
     Indication: STOMACH DISCOMFORT
     Dosage: DAILY
     Dates: start: 20030101, end: 20030115
  2. ARANESP [Concomitant]
  3. NIFEREX [Concomitant]
  4. LOPRESSOR [Concomitant]
  5. MULTI-VITAMIN [Concomitant]

REACTIONS (1)
  - TOXIC EPIDERMAL NECROLYSIS [None]
